FAERS Safety Report 23508658 (Version 2)
Quarter: 2024Q1

REPORT INFORMATION
  Report Type: Report from Study
  Country: CA (occurrence: CA)
  Receive Date: 20240209
  Receipt Date: 20240216
  Transmission Date: 20240410
  Serious: Yes (Hospitalization, Disabling, Other)
  Sender: FDA-Public Use
  Company Number: CA-AstraZeneca-2024A008576

PATIENT
  Age: 41 Year
  Sex: Female
  Weight: 91.6 kg

DRUGS (1)
  1. ENHERTU [Suspect]
     Active Substance: FAM-TRASTUZUMAB DERUXTECAN-NXKI
     Indication: Breast cancer metastatic
     Dosage: 469.8 MG, ONCE EVERY 3 WK
     Route: 042
     Dates: start: 20231130, end: 20240206

REACTIONS (15)
  - Infection [Unknown]
  - Drug intolerance [Unknown]
  - Myocardial infarction [Unknown]
  - Bacteraemia [Unknown]
  - Malignant neoplasm progression [Unknown]
  - Nasopharyngitis [Unknown]
  - Back pain [Unknown]
  - Pain [Unknown]
  - Malaise [Unknown]
  - Alopecia [Unknown]
  - Fatigue [Unknown]
  - Breast swelling [Unknown]
  - Breast inflammation [Unknown]
  - Lung opacity [Unknown]
  - Drug ineffective [Unknown]

NARRATIVE: CASE EVENT DATE: 20240206
